FAERS Safety Report 8268453-9 (Version None)
Quarter: 2012Q1

REPORT INFORMATION
  Report Type: 
  Country: None (occurrence: None)
  Receive Date: 20120327
  Receipt Date: 20091117
  Transmission Date: 20120608
  Serious: Yes (Other)
  Sender: FDA-Public Use
  Company Number: PHEH2009US06548

PATIENT
  Age: 49 Year
  Sex: Male

DRUGS (6)
  1. GLEEVEC [Suspect]
     Dosage: 200;400 MG, ORAL
     Route: 048
     Dates: start: 20090408, end: 20090422
  2. GLEEVEC [Suspect]
     Dosage: 200;400 MG, ORAL
     Route: 048
     Dates: start: 20090422, end: 20090506
  3. GLEEVEC [Suspect]
     Dosage: 200;400 MG, ORAL
     Route: 048
     Dates: start: 20090408, end: 20090422
  4. GLEEVEC [Suspect]
     Dosage: 200;400 MG, ORAL
     Route: 048
     Dates: start: 20090507, end: 20090629
  5. TASIGNA [Suspect]
     Dosage: UNK
     Dates: start: 20090526
  6. ALLEGRA-D 12 HOUR [Concomitant]

REACTIONS (11)
  - WHITE BLOOD CELL COUNT DECREASED [None]
  - PRURITUS [None]
  - LIP SWELLING [None]
  - HAEMOGLOBIN DECREASED [None]
  - SWELLING FACE [None]
  - MALAISE [None]
  - HEPATIC ENZYME INCREASED [None]
  - OEDEMA MOUTH [None]
  - PLATELET COUNT DECREASED [None]
  - LIP DRY [None]
  - RASH [None]
